FAERS Safety Report 23339060 (Version 1)
Quarter: 2023Q4

REPORT INFORMATION
  Report Type: Spontaneous
  Country: US (occurrence: US)
  Receive Date: 20231226
  Receipt Date: 20231226
  Transmission Date: 20240109
  Serious: No
  Sender: FDA-Public Use
  Company Number: US-HALEON-USCH2023065515

PATIENT
  Sex: Male

DRUGS (1)
  1. EQUATE NICOTINE [Suspect]
     Active Substance: NICOTINE
     Indication: Product used for unknown indication
     Dosage: 1 DF, QD
     Dates: start: 20231213, end: 20231219

REACTIONS (3)
  - Hypersensitivity [Not Recovered/Not Resolved]
  - Application site erythema [Unknown]
  - Expired product administered [Unknown]

NARRATIVE: CASE EVENT DATE: 20230319
